FAERS Safety Report 9455417 (Version 1)
Quarter: 2013Q3

REPORT INFORMATION
  Report Type: Spontaneous
  Country: US (occurrence: US)
  Receive Date: 20130813
  Receipt Date: 20130813
  Transmission Date: 20140515
  Serious: Yes (Other)
  Sender: FDA-Public Use
  Company Number: PHHY2013US085503

PATIENT
  Age: 71 Year
  Sex: Male
  Weight: 67 kg

DRUGS (12)
  1. ZOMETA [Suspect]
     Dosage: 1 IN 1 M
     Dates: start: 201004, end: 201204
  2. DEXAMETHASONE SANDOZ [Suspect]
     Indication: PLASMA CELL MYELOMA
     Dosage: 1 IN 1 M
     Route: 048
     Dates: start: 20110426, end: 20110526
  3. DEXAMETHASONE SANDOZ [Suspect]
     Dosage: 1 IN 1 M
     Route: 048
     Dates: start: 20111205, end: 20120101
  4. DEXAMETHASONE SANDOZ [Suspect]
     Dosage: 1 IN 1 M
     Route: 048
     Dates: start: 20120125, end: 20120221
  5. REVLIMID [Suspect]
     Indication: PLASMA CELL MYELOMA
     Dosage: 15 MG, 21 IN 28 D
     Route: 048
     Dates: start: 20110426, end: 20110516
  6. REVLIMID [Suspect]
     Dosage: 10 MG, 1 IN 1 D
     Route: 048
     Dates: start: 20110815, end: 20110904
  7. REVLIMID [Suspect]
     Dosage: 10 MG, 1 IN 1 D
     Route: 048
     Dates: start: 20120809, end: 20120829
  8. REVLIMID [Suspect]
     Dosage: UNK UKN, UNK
     Route: 048
     Dates: start: 20121107
  9. OXYCODONE HYDROCHLORIDE [Concomitant]
     Indication: PAIN
     Dosage: 1*2
     Route: 048
     Dates: start: 20120820
  10. LEVOFLOXACIN [Concomitant]
     Indication: INFECTION
     Dosage: 1*2
     Route: 048
     Dates: start: 20120905, end: 20120915
  11. MELPHALAN [Concomitant]
     Dosage: UNK UKN, UNK
     Dates: start: 201003, end: 201012
  12. BORTEZOMIB [Concomitant]
     Dosage: UNK UKN, UNK
     Dates: start: 201003, end: 201012

REACTIONS (3)
  - Osteonecrosis of jaw [Not Recovered/Not Resolved]
  - Renal failure [Recovered/Resolved]
  - Pneumonitis [Recovered/Resolved]
